FAERS Safety Report 6360834-3 (Version None)
Quarter: 2009Q3

REPORT INFORMATION
  Report Type: 
  Country: None (occurrence: None)
  Receive Date: 20090918
  Receipt Date: 20090908
  Transmission Date: 20100115
  Serious: Yes (Hospitalization)
  Sender: FDA-Public Use
  Company Number: US-ROCHE-655793

PATIENT
  Sex: Female
  Weight: 93.4 kg

DRUGS (1)
  1. CAPECITABINE [Suspect]
     Indication: GASTROINTESTINAL CARCINOMA
     Route: 048
     Dates: start: 20090813

REACTIONS (3)
  - DIARRHOEA [None]
  - LABILE BLOOD PRESSURE [None]
  - RENAL FAILURE ACUTE [None]
